FAERS Safety Report 9490003 (Version 1)
Quarter: 2013Q3

REPORT INFORMATION
  Report Type: Spontaneous
  Country: US (occurrence: US)
  Receive Date: 20130829
  Receipt Date: 20130829
  Transmission Date: 20140515
  Serious: Yes (Other)
  Sender: FDA-Public Use
  Company Number: US-ABBOTT-13P-163-1138816-00

PATIENT
  Age: 40 Year
  Sex: Male
  Weight: 127 kg

DRUGS (8)
  1. DEPAKOTE ER [Suspect]
     Indication: BIPOLAR DISORDER
  2. VIIBRYD [Suspect]
     Indication: DEPRESSION
     Route: 048
     Dates: start: 20120109, end: 20120115
  3. VIIBRYD [Suspect]
     Route: 048
     Dates: start: 20120116, end: 20120304
  4. VIIBRYD [Suspect]
     Route: 048
     Dates: start: 20120305, end: 20120603
  5. VIIBRYD [Suspect]
     Route: 048
     Dates: start: 20120604, end: 20120717
  6. VIIBRYD [Suspect]
     Route: 048
     Dates: start: 20120718, end: 20120805
  7. VIIBRYD [Suspect]
     Route: 048
     Dates: start: 20120806, end: 20130708
  8. CONCERTA [Concomitant]
     Indication: ATTENTION DEFICIT/HYPERACTIVITY DISORDER

REACTIONS (2)
  - Rectal haemorrhage [Unknown]
  - Mania [Recovered/Resolved]
